FAERS Safety Report 7232491-5 (Version None)
Quarter: 2011Q1

REPORT INFORMATION
  Report Type: 
  Country: None (occurrence: None)
  Receive Date: 20110119
  Receipt Date: 20110112
  Transmission Date: 20110831
  Serious: Yes (Other)
  Sender: FDA-Public Use
  Company Number: US-BAYER-2010-001639

PATIENT
  Age: 34 Year
  Sex: Female
  Weight: 63.492 kg

DRUGS (3)
  1. AMBIEN [Concomitant]
     Dosage: 5-10 MG, PRN
     Route: 048
  2. VITAMIN D [Concomitant]
     Dosage: 1000 IU, QD
  3. OCELLA [Suspect]
     Indication: DYSMENORRHOEA
     Dosage: UNK
     Route: 048
     Dates: start: 20010101, end: 20101211

REACTIONS (4)
  - PAIN [None]
  - DEEP VEIN THROMBOSIS [None]
  - PAIN IN EXTREMITY [None]
  - OEDEMA PERIPHERAL [None]
